FAERS Safety Report 6752582-2 (Version None)
Quarter: 2010Q2

REPORT INFORMATION
  Report Type: 
  Country: None (occurrence: None)
  Receive Date: 20100602
  Receipt Date: 20100519
  Transmission Date: 20101027
  Serious: Yes (Hospitalization)
  Sender: FDA-Public Use
  Company Number: PHHY2010FR33008

PATIENT

DRUGS (4)
  1. CGP 57148B T35717+ [Suspect]
     Indication: CHRONIC MYELOID LEUKAEMIA
  2. TASIGNA [Suspect]
  3. SKENAN [Concomitant]
     Dosage: 2 DF (20 MG) DAILY
  4. PREVISCAN [Concomitant]
     Dosage: 20 MG/DAY

REACTIONS (2)
  - PNEUMONIA [None]
  - PULMONARY EMBOLISM [None]
